FAERS Safety Report 10329829 (Version 4)
Quarter: 2014Q4

REPORT INFORMATION
  Report Type: Spontaneous
  Country: US (occurrence: US)
  Receive Date: 20140721
  Receipt Date: 20141210
  Transmission Date: 20150528
  Serious: Yes (Hospitalization, Disabling, Other)
  Sender: FDA-Public Use
  Company Number: US-009507513-1407USA008630

PATIENT
  Sex: Male

DRUGS (3)
  1. FOSAMAX [Suspect]
     Active Substance: ALENDRONATE SODIUM
     Indication: OSTEOPOROSIS
     Dosage: 70 MG, QW
     Route: 048
     Dates: start: 20050921, end: 201211
  2. ALENDRONATE SODIUM. [Suspect]
     Active Substance: ALENDRONATE SODIUM
     Indication: OSTEOPOROSIS
     Dosage: 70 MG, UNK
     Route: 048
     Dates: start: 2008, end: 201211
  3. FOSAMAX [Suspect]
     Active Substance: ALENDRONATE SODIUM
     Dosage: 10 MG, QD
     Route: 048
     Dates: start: 1997, end: 2005

REACTIONS (16)
  - Pain in extremity [Unknown]
  - Lumbar vertebral fracture [Unknown]
  - Haemorrhagic anaemia [Unknown]
  - Oral surgery [Unknown]
  - Osteoarthritis [Unknown]
  - Denture wearer [Unknown]
  - Mass excision [Unknown]
  - Pulmonary oedema [Unknown]
  - Femur fracture [Recovering/Resolving]
  - Fall [Unknown]
  - Osteopenia [Unknown]
  - Intramedullary rod insertion [Unknown]
  - Low turnover osteopathy [Unknown]
  - Appendicectomy [Unknown]
  - Arthropathy [Unknown]
  - Impetigo [Unknown]

NARRATIVE: CASE EVENT DATE: 20020522
